FAERS Safety Report 18037003 (Version 3)
Quarter: 2020Q3

REPORT INFORMATION
  Report Type: Spontaneous
  Country: US (occurrence: US)
  Receive Date: 20200717
  Receipt Date: 20200720
  Transmission Date: 20201103
  Serious: Yes (Other)
  Sender: FDA-Public Use
  Company Number: US-GLAXOSMITHKLINE-US2020131233

PATIENT
  Sex: Female

DRUGS (1)
  1. NUCALA [Suspect]
     Active Substance: MEPOLIZUMAB
     Indication: ASTHMA
     Dosage: 100 MG, CYC EVERY 4 WEEKS
     Route: 058

REACTIONS (5)
  - Tracheomalacia [Unknown]
  - Dyspnoea [Unknown]
  - Condition aggravated [Unknown]
  - Bronchomalacia [Unknown]
  - Drug ineffective [Unknown]
